FAERS Safety Report 14261561 (Version 1)
Quarter: 2017Q4

REPORT INFORMATION
  Report Type: Spontaneous
  Country: BR (occurrence: BR)
  Receive Date: 20171208
  Receipt Date: 20171208
  Transmission Date: 20180321
  Serious: Yes (Other)
  Sender: FDA-Public Use
  Company Number: BR-009507513-1712BRA003505

PATIENT
  Age: 34 Year
  Sex: Male
  Weight: 75 kg

DRUGS (3)
  1. SINGULAIR [Suspect]
     Active Substance: MONTELUKAST SODIUM
     Indication: RHINITIS ALLERGIC
     Dosage: 10 MG 1 TABLET PER DAY
     Route: 048
     Dates: start: 2008
  2. GARAMICINA [Suspect]
     Active Substance: GENTAMICIN SULFATE
     Indication: RHINITIS ALLERGIC
     Dosage: UNK
     Dates: start: 2005, end: 2008
  3. DESALEX [Suspect]
     Active Substance: DESLORATADINE
     Indication: RHINITIS ALLERGIC
     Dosage: 5 MG 1 TABLET PER DAY
     Route: 048
     Dates: start: 2008

REACTIONS (6)
  - Apnoea [Unknown]
  - Oropharyngeal discomfort [Unknown]
  - Granulomatous lymphadenitis [Unknown]
  - Lymphadenopathy [Unknown]
  - Nasal congestion [Unknown]
  - Breath odour [Unknown]

NARRATIVE: CASE EVENT DATE: 2017
